FAERS Safety Report 5454175-6 (Version None)
Quarter: 2007Q3

REPORT INFORMATION
  Report Type: 
  Country: None (occurrence: None)
  Receive Date: 20070917
  Receipt Date: 20070911
  Transmission Date: 20080115
  Serious: Yes (Other)
  Sender: FDA-Public Use
  Company Number: PHBS2007JP15068

PATIENT
  Age: 13 Year

DRUGS (1)
  1. SANDOSTATIN [Suspect]
     Indication: ACROMEGALY

REACTIONS (1)
  - OSTEONECROSIS [None]
